FAERS Safety Report 7819984-4 (Version None)
Quarter: 2011Q4

REPORT INFORMATION
  Report Type: 
  Country: None (occurrence: None)
  Receive Date: 20111018
  Receipt Date: 20111014
  Transmission Date: 20120403
  Serious: No
  Sender: FDA-Public Use
  Company Number: US-TEVA-305326USA

PATIENT
  Sex: Female
  Weight: 66.284 kg

DRUGS (3)
  1. PLAN B ONE-STEP [Suspect]
     Indication: POST COITAL CONTRACEPTION
     Dosage: 1.5 MILLIGRAM;
     Route: 048
     Dates: start: 20111014, end: 20111014
  2. XANAX [Concomitant]
     Indication: ANXIETY
  3. PAXIL [Concomitant]
     Indication: DEPRESSION

REACTIONS (1)
  - DIARRHOEA [None]
